FAERS Safety Report 14334226 (Version 3)
Quarter: 2018Q1

REPORT INFORMATION
  Report Type: Spontaneous
  Country: SI (occurrence: SI)
  Receive Date: 20171228
  Receipt Date: 20180312
  Transmission Date: 20180509
  Serious: No
  Sender: FDA-Public Use
  Company Number: SI-OTSUKA-2017_027904

PATIENT
  Sex: Female

DRUGS (3)
  1. ABILIFY MAINTENA [Suspect]
     Active Substance: ARIPIPRAZOLE
     Indication: SCHIZOPHRENIA
     Dosage: 300 MG, UNK
     Route: 030
     Dates: start: 201705, end: 20180108
  2. ABILIFY MAINTENA [Suspect]
     Active Substance: ARIPIPRAZOLE
     Dosage: 400 MG, UNK
     Route: 030
     Dates: start: 20160923, end: 20170503
  3. ABILIFY MAINTENA [Suspect]
     Active Substance: ARIPIPRAZOLE
     Dosage: 200 MG, UNK
     Route: 030
     Dates: start: 201801

REACTIONS (4)
  - Prescribed underdose [Unknown]
  - Galactorrhoea [Recovering/Resolving]
  - Paradoxical drug reaction [Unknown]
  - Blood prolactin decreased [Unknown]

NARRATIVE: CASE EVENT DATE: 201705
